FAERS Safety Report 8815677 (Version 1)
Quarter: 2012Q4

REPORT INFORMATION
  Report Type: 
  Country: US (occurrence: US)
  Receive Date: 20120928
  Receipt Date: 20120928
  Transmission Date: 20130627
  Serious: Yes (Hospitalization, Other)
  Sender: FDA-Public Use
  Company Number: US-PFIZER INC-2012233757

PATIENT
  Age: 58 Year
  Sex: Female
  Weight: 118 kg

DRUGS (27)
  1. ZITHROMAX [Suspect]
     Dosage: UNK
     Dates: start: 20100609
  2. ZITHROMAX [Suspect]
     Dosage: UNK
     Dates: start: 20120312
  3. CARDIZEM CD [Concomitant]
     Dosage: 240 mg, 1x/day
     Route: 048
  4. PRINIVIL [Concomitant]
     Dosage: 5 mg, 1x/day
     Route: 048
  5. PRINIVIL [Concomitant]
     Dosage: 10 mg, 1x/day
  6. METOPROLOL TARTRATE [Concomitant]
     Dosage: 25 mg, 2x/day
     Route: 048
  7. MICROZIDE [Concomitant]
     Dosage: 12.5 UNK, UNK
     Route: 048
  8. TRIDERM [Concomitant]
     Dosage: 0.1 %, to affected area twice a day Monday to Friday
  9. COUMADINE [Concomitant]
     Dosage: 5 mg, 3 pills four days a week
  10. COUMADINE [Concomitant]
     Dosage: 5 mg, 2 pills three days a week
  11. VANIQA [Concomitant]
     Dosage: 13.9 %, face twice daily
  12. MULTIVITAMINS [Concomitant]
     Dosage: UNK, once daily
     Route: 048
  13. OMEGA-3 [Concomitant]
     Dosage: 1000 mg, 1x/day
  14. RUTIN-C [Concomitant]
     Dosage: 50 mg, 2x/day
  15. VITAMIN C [Concomitant]
     Dosage: 500 mg, 2x/day
  16. ESIDRIX [Concomitant]
     Dosage: 25 mg, 1x/day
     Route: 048
  17. LOPRESSOR [Concomitant]
     Dosage: 50 mg, 2x/day
  18. CALCIUM CARBONATE/COLECALCIFEROL [Concomitant]
     Dosage: UNK
  19. VITAMIN D [Concomitant]
     Dosage: 50000 units, 1 cap daily
     Route: 048
  20. ZESTRIL [Concomitant]
     Dosage: 2.5 mg, 1x/day
     Route: 048
  21. LOVENOX [Concomitant]
     Dosage: 120mg/0.8mL, twice daily
     Route: 058
  22. ASA [Concomitant]
     Dosage: 325 mg, UNK
  23. HYDROCHLOROTHIAZIDE [Concomitant]
     Dosage: 2.5 mg, 1x/day
  24. AMLODIPINE [Concomitant]
     Dosage: 10 mg, UNK
     Route: 048
  25. HYDROCHLOROTHIAZIDE/LOSARTAN [Concomitant]
     Dosage: 25 mg-100 mg
     Route: 048
  26. HYZAAR [Concomitant]
     Indication: BLOOD PRESSURE ABNORMAL
     Dosage: UNK
  27. NORVASC [Concomitant]
     Indication: BLOOD PRESSURE ABNORMAL
     Dosage: UNK

REACTIONS (21)
  - Heart rate increased [Recovering/Resolving]
  - Cardiac failure congestive [Unknown]
  - Cerebrovascular accident [Not Recovered/Not Resolved]
  - Right atrial dilatation [Unknown]
  - Pulmonary hypertension [Unknown]
  - Atrial fibrillation [Unknown]
  - Left atrial dilatation [Unknown]
  - Malaise [Unknown]
  - Cough [Unknown]
  - Dyspnoea [Unknown]
  - Bronchitis chronic [Not Recovered/Not Resolved]
  - Bronchitis [Not Recovered/Not Resolved]
  - Wheezing [Not Recovered/Not Resolved]
  - Heart valve incompetence [Unknown]
  - Palpitations [Unknown]
  - Vitamin D deficiency [Unknown]
  - Ejection fraction decreased [Unknown]
  - Upper respiratory tract infection [Unknown]
  - Bradycardia [Unknown]
  - Left ventricular hypertrophy [Unknown]
  - Sputum increased [Unknown]
